FAERS Safety Report 7487644-8 (Version None)
Quarter: 2011Q2

REPORT INFORMATION
  Report Type: 
  Country: None (occurrence: None)
  Receive Date: 20110518
  Receipt Date: 20081227
  Transmission Date: 20111010
  Serious: Yes (Death, Hospitalization, Other)
  Sender: FDA-Public Use
  Company Number: US-BAYER-200841817NA

PATIENT
  Age: 59 Year
  Sex: Male
  Weight: 81.633 kg

DRUGS (20)
  1. FOLIC ACID [Concomitant]
     Dosage: 1 MG, UNK
     Route: 048
  2. PROTAMINE SULFATE [Concomitant]
     Dosage: 25 MG, UNK
     Dates: start: 20061208
  3. COUMADIN [Concomitant]
     Dosage: UNK
     Route: 048
  4. ZOCOR [Concomitant]
     Dosage: 40 MG, UNK
     Route: 048
     Dates: start: 20061205
  5. AMIODARONE HCL [Concomitant]
     Dosage: 200 MG, UNK
     Route: 048
     Dates: start: 20061208
  6. PACERONE [Concomitant]
     Dosage: 200 MG, UNK
     Route: 048
  7. VANCOMYCIN [Concomitant]
     Dosage: 1.5 MG, UNK
     Route: 042
  8. LIDOCAINE [Concomitant]
     Dosage: 100 MG, UNK
     Route: 042
     Dates: start: 20061209
  9. LIPITOR [Concomitant]
     Dosage: 20 MG, UNK
     Route: 048
  10. DILTIAZEM [Concomitant]
     Dosage: 60 MG, UNK
     Route: 048
     Dates: start: 20060315
  11. LASIX [Concomitant]
     Dosage: 20 MG, UNK
  12. DIGOXIN [Concomitant]
     Dosage: 0.25 MG, UNK
     Dates: start: 20060315
  13. METOPROLOL SUCCINATE [Concomitant]
     Dosage: 25 MG, UNK
     Route: 048
  14. CONTRAST MEDIA [Concomitant]
     Indication: CATHETERISATION CARDIAC
     Dosage: UNK
     Dates: start: 20061206
  15. TRASYLOL [Suspect]
     Indication: CORONARY ARTERY BYPASS
     Dosage: 1 ML, UNK
     Route: 042
     Dates: start: 20061208, end: 20061208
  16. TRASYLOL [Suspect]
     Dosage: 200 ML FOLLOWED BY 50CC/HR UNK, UNK
     Route: 042
     Dates: start: 20061208, end: 20061208
  17. HEPARIN [Concomitant]
     Dosage: 10000 U, UNK
     Route: 042
     Dates: start: 20061208
  18. LASIX [Concomitant]
     Dosage: 40 MG, UNK
     Route: 042
     Dates: start: 20061208
  19. LASIX [Concomitant]
     Dosage: 20 MG, UNK
     Route: 048
  20. SOLU-MEDROL [Concomitant]
     Dosage: 125 MG, UNK
     Route: 042
     Dates: start: 20061208

REACTIONS (12)
  - RENAL INJURY [None]
  - INJURY [None]
  - FEAR [None]
  - DEATH [None]
  - ANHEDONIA [None]
  - ANXIETY [None]
  - RENAL IMPAIRMENT [None]
  - UNEVALUABLE EVENT [None]
  - PAIN [None]
  - RENAL FAILURE [None]
  - EMOTIONAL DISTRESS [None]
  - STRESS [None]
